FAERS Safety Report 6689963-1 (Version None)
Quarter: 2010Q2

REPORT INFORMATION
  Report Type: 
  Country: None (occurrence: None)
  Receive Date: 20100421
  Receipt Date: 20100409
  Transmission Date: 20101027
  Serious: Yes (Other)
  Sender: FDA-Public Use
  Company Number: KR-PFIZER INC-2010045961

PATIENT
  Sex: Male

DRUGS (1)
  1. SUTENE [Suspect]
     Indication: HEPATIC CANCER METASTATIC
     Dosage: UNK
     Route: 048

REACTIONS (2)
  - SKIN EROSION [None]
  - TONGUE ULCERATION [None]
